FAERS Safety Report 4767760-1 (Version None)
Quarter: 2005Q3

REPORT INFORMATION
  Report Type: 
  Country: None (occurrence: None)
  Receive Date: 20050912
  Receipt Date: 20050831
  Transmission Date: 20060218
  Serious: Yes (Other)
  Sender: FDA-Public Use
  Company Number: 2005122772

PATIENT
  Sex: Male

DRUGS (2)
  1. VIAGRA [Suspect]
     Indication: ILL-DEFINED DISORDER
     Dosage: AS NECESSARY, ORAL
     Route: 048
  2. DIGESTIVES, INCL ENZYMES (DIGESTIVES, INCL ENZYMES) [Concomitant]

REACTIONS (2)
  - RETINAL HAEMORRHAGE [None]
  - SELF-MEDICATION [None]
